FAERS Safety Report 7588969-8 (Version None)
Quarter: 2011Q3

REPORT INFORMATION
  Report Type: 
  Country: None (occurrence: None)
  Receive Date: 20110705
  Receipt Date: 20110621
  Transmission Date: 20111222
  Serious: Yes (Other)
  Sender: FDA-Public Use
  Company Number: CH-JNJFOC-20110405958

PATIENT
  Sex: Female

DRUGS (3)
  1. REMICADE [Suspect]
     Indication: POLYARTHRITIS
     Route: 042
     Dates: start: 20040101
  2. METHOTREXATE [Concomitant]
     Indication: POLYARTHRITIS
     Route: 065
     Dates: start: 20040101
  3. METHOTREXATE [Concomitant]
     Indication: RHEUMATOID ARTHRITIS
     Route: 065
     Dates: start: 20040101

REACTIONS (3)
  - ADENOCARCINOMA [None]
  - MALIGNANT PLEURAL EFFUSION [None]
  - METASTASES TO THE MEDIASTINUM [None]
